FAERS Safety Report 9055627 (Version 1)
Quarter: 2013Q1

REPORT INFORMATION
  Report Type: Spontaneous
  Country: US (occurrence: US)
  Receive Date: 20130206
  Receipt Date: 20130206
  Transmission Date: 20140127
  Serious: Yes (Other)
  Sender: FDA-Public Use
  Company Number: US-DX529-2013DX000022

PATIENT
  Age: 36 Year
  Sex: Female
  Weight: 92.08 kg

DRUGS (1)
  1. KALBITOR [Suspect]
     Indication: HEREDITARY ANGIOEDEMA
     Route: 058
     Dates: start: 20130124, end: 20130124

REACTIONS (6)
  - Hypersensitivity [Recovered/Resolved]
  - Paraesthesia oral [None]
  - Flushing [None]
  - Feeling hot [None]
  - Urticaria [None]
  - Pruritus [None]
